FAERS Safety Report 8027302-4 (Version None)
Quarter: 2012Q1

REPORT INFORMATION
  Report Type: 
  Country: None (occurrence: None)
  Receive Date: 20120104
  Receipt Date: 20111219
  Transmission Date: 20120608
  Serious: Yes (Hospitalization)
  Sender: FDA-Public Use
  Company Number: 2011AP003112

PATIENT
  Age: 81 Year
  Sex: Female

DRUGS (7)
  1. BENDROFLUMETHIAZIDE (BENDROFLUMETHIAZIDE) [Concomitant]
  2. WARFARIN SODIUM [Concomitant]
  3. BISOPROLOL FUMARATE [Concomitant]
  4. DIGOXIN [Suspect]
     Indication: PRODUCT USED FOR UNKNOWN INDICATION
     Dosage: 125 UG;PO;QD
     Route: 048
     Dates: end: 20110910
  5. CANDESARTAN CILEXETIL [Concomitant]
  6. ISOSORBIDE MONONITRATE [Concomitant]
  7. CLARITHROMYCIN [Suspect]
     Indication: PRODUCT USED FOR UNKNOWN INDICATION
     Dosage: 500 MG;BID;PO
     Route: 048
     Dates: start: 20110825, end: 20110908

REACTIONS (5)
  - HEART RATE DECREASED [None]
  - TOXICITY TO VARIOUS AGENTS [None]
  - DRUG INTERACTION [None]
  - DECREASED APPETITE [None]
  - WEIGHT DECREASED [None]
